FAERS Safety Report 7690488-5 (Version None)
Quarter: 2011Q3

REPORT INFORMATION
  Report Type: 
  Country: None (occurrence: None)
  Receive Date: 20110818
  Receipt Date: 20110815
  Transmission Date: 20111222
  Serious: Yes (Death, Hospitalization)
  Sender: FDA-Public Use
  Company Number: GB-PFIZER INC-2011186972

PATIENT
  Age: 80 Year
  Sex: Female
  Weight: 94 kg

DRUGS (11)
  1. SOMATROPIN RDNA [Suspect]
     Indication: GROWTH HORMONE DEFICIENCY
     Dosage: UNK, 7 INJECTIONS A WEEK
     Dates: start: 20020416, end: 20110709
  2. ZOPICLONE [Concomitant]
     Indication: SLEEP DISORDER
     Dosage: 7.5 MG, DAILY
     Route: 048
     Dates: start: 20090223
  3. DIGOXIN [Concomitant]
     Indication: CARDIAC FAILURE
     Dosage: 187.5 MG, DAILY
     Route: 048
     Dates: start: 20080207
  4. HYDROCORTISONE [Concomitant]
     Indication: BLOOD CORTICOTROPHIN DECREASED
     Dosage: 30 MG, DAILY
     Route: 048
     Dates: start: 19760107
  5. LEVOTHYROXINE SODIUM [Concomitant]
     Indication: PRIMARY HYPOTHYROIDISM
  6. ALLOPURINOL [Concomitant]
     Indication: GOUT
     Dosage: 200 MG, DAILY
     Route: 048
     Dates: start: 20090223
  7. LISINOPRIL [Concomitant]
     Indication: ESSENTIAL HYPERTENSION
     Dosage: 20 MG, DAILY
     Route: 048
     Dates: start: 20080601
  8. LEVOTHYROXINE SODIUM [Concomitant]
     Indication: BLOOD THYROID STIMULATING HORMONE DECREASED
     Dosage: 150 UG, DAILY
     Route: 048
     Dates: start: 19990101
  9. LYPRINOL [Concomitant]
     Indication: OSTEOPOROSIS
     Dosage: 25 MG, DAILY
     Route: 048
     Dates: start: 20040315
  10. SIMVASTATIN [Concomitant]
     Indication: HYPERCHOLESTEROLAEMIA
     Dosage: 40 MG, DAILY
     Route: 048
     Dates: start: 20080206
  11. FOSAMAX [Concomitant]
     Indication: OSTEOPOROSIS
     Dosage: 70 MG, DAILY
     Dates: start: 20020819

REACTIONS (1)
  - DEATH [None]
